FAERS Safety Report 6760519-5 (Version None)
Quarter: 2010Q2

REPORT INFORMATION
  Report Type: 
  Country: None (occurrence: None)
  Receive Date: 20100607
  Receipt Date: 20100607
  Transmission Date: 20101027
  Serious: Yes (Hospitalization)
  Sender: FDA-Public Use
  Company Number: None

PATIENT
  Sex: Female
  Weight: 68 kg

DRUGS (8)
  1. LORAZEPAM [Suspect]
     Indication: CRYING
     Dosage: 2MG STAT PO
     Route: 048
     Dates: start: 20100604
  2. LORAZEPAM [Suspect]
     Indication: DEPRESSION
     Dosage: 2MG STAT PO
     Route: 048
     Dates: start: 20100604
  3. LORAZEPAM [Suspect]
     Indication: SCREAMING
     Dosage: 2MG STAT PO
     Route: 048
     Dates: start: 20100604
  4. CLOZAPINE [Concomitant]
  5. VALPROIC ACID [Concomitant]
  6. NALTREXONE HYDROCHLORIDE [Concomitant]
  7. ATROPINE SULFATE [Concomitant]
  8. CIPROFLOXACIN [Concomitant]

REACTIONS (6)
  - ASTHENIA [None]
  - COGNITIVE DISORDER [None]
  - DELIRIUM [None]
  - ENCEPHALOPATHY [None]
  - INCOHERENT [None]
  - POSTURE ABNORMAL [None]
